FAERS Safety Report 5958266-2 (Version None)
Quarter: 2008Q4

REPORT INFORMATION
  Report Type: 
  Country: None (occurrence: None)
  Receive Date: 20081117
  Receipt Date: 20081117
  Transmission Date: 20090506
  Serious: Yes (Life-Threatening, Other)
  Sender: FDA-Public Use
  Company Number: None

PATIENT
  Age: 39 Year
  Sex: Female
  Weight: 83.9154 kg

DRUGS (1)
  1. BENZONATATE [Suspect]
     Indication: BRONCHITIS
     Dosage: 1-2 PILLS  8 HOURS PO
     Route: 048
     Dates: start: 20070831, end: 20070831

REACTIONS (7)
  - BLINDNESS [None]
  - CONFUSIONAL STATE [None]
  - DISORIENTATION [None]
  - DYSPNOEA [None]
  - HALLUCINATION [None]
  - LOSS OF CONSCIOUSNESS [None]
  - SKIN DISCOLOURATION [None]
